FAERS Safety Report 7814846-0 (Version None)
Quarter: 2011Q4

REPORT INFORMATION
  Report Type: 
  Country: None (occurrence: None)
  Receive Date: 20111013
  Receipt Date: 20111013
  Transmission Date: 20120403
  Serious: Yes (Life-Threatening, Hospitalization)
  Sender: FDA-Public Use
  Company Number: None

PATIENT
  Sex: Female
  Weight: 70.3075 kg

DRUGS (1)
  1. DICLOFENAC SODIUM [Suspect]
     Indication: PAIN
     Dosage: 1 TABLET BID ORAL
     Route: 048
     Dates: start: 20110715, end: 20110721

REACTIONS (4)
  - MYOCARDIAL INFARCTION [None]
  - ABDOMINAL PAIN [None]
  - CHEST PAIN [None]
  - RECTAL HAEMORRHAGE [None]
